FAERS Safety Report 13281682 (Version 9)
Quarter: 2018Q4

REPORT INFORMATION
  Report Type: Spontaneous
  Country: IT (occurrence: IT)
  Receive Date: 20170301
  Receipt Date: 20181212
  Transmission Date: 20190204
  Serious: Yes (Hospitalization, Other)
  Sender: FDA-Public Use
  Company Number: IT-AUROBINDO-AUR-APL-2017-30398

PATIENT
  Age: 59 Year
  Sex: Male

DRUGS (5)
  1. METRONIDAZOLE. [Suspect]
     Active Substance: METRONIDAZOLE
     Indication: ANTIBIOTIC THERAPY
     Dosage: UNK
     Route: 048
  2. BECLOMETASONE DIPROPIONATE [Concomitant]
     Active Substance: BECLOMETHASONE DIPROPIONATE
     Indication: CROHN^S DISEASE
     Dosage: 5 MILLIGRAM, DAILY
     Route: 065
  3. ATENOLOL + CLORTALIDONA [Concomitant]
     Indication: HYPERTENSION
     Dosage: UNK
     Route: 065
  4. METFORMIN [Suspect]
     Active Substance: METFORMIN HYDROCHLORIDE
     Indication: DIABETES MELLITUS
     Dosage: UNK
     Route: 065
  5. IMIPENEM AND CILASTATIN [Suspect]
     Active Substance: CILASTATIN SODIUM\IMIPENEM
     Indication: ANTIBIOTIC THERAPY
     Dosage: UNK
     Route: 065

REACTIONS (11)
  - Seizure [Recovered/Resolved]
  - Neurological symptom [Recovered/Resolved]
  - Product use in unapproved indication [Unknown]
  - Polyuria [Unknown]
  - Loss of consciousness [Recovered/Resolved]
  - Metabolic acidosis [Recovered/Resolved]
  - Hyponatraemia [Recovered/Resolved]
  - Abdominal pain [Recovered/Resolved]
  - Cerebrovascular accident [Recovered/Resolved]
  - Renal tubular disorder [Unknown]
  - Hypocalcaemia [Recovered/Resolved]
